FAERS Safety Report 8742495 (Version 2)
Quarter: 2012Q4

REPORT INFORMATION
  Report Type: Spontaneous
  Country: JP (occurrence: None)
  Receive Date: 20120807
  Receipt Date: 20120817
  Transmission Date: 20130627
  Serious: Yes (Other)
  Sender: FDA-Public Use
  Company Number: DKLU1083561

PATIENT
  Sex: Female

DRUGS (7)
  1. ONFI [Suspect]
     Indication: INFANTILE SPASMS
  2. VALPROIC ACID [Suspect]
     Indication: INFANTILE SPASMS
  3. TOPIRAMATE [Suspect]
     Indication: INFANTILE SPASMS
  4. CORTICOTROPIN (CORTICOTROPIN) [Concomitant]
  5. ZONISAMIDE [Concomitant]
  6. POTASSIUM BROMIDE (POTASSIUM BROMIDE) [Concomitant]
  7. BENZODIAZEPINE DERIVATIVES (BENZODIAZEPINE DERIVATIVES) [Concomitant]

REACTIONS (6)
  - Drop attacks [None]
  - Developmental delay [None]
  - Injury [None]
  - Head injury [None]
  - Atonic seizures [None]
  - Fall [None]
